FAERS Safety Report 5400899-6 (Version None)
Quarter: 2007Q3

REPORT INFORMATION
  Report Type: 
  Country: None (occurrence: None)
  Receive Date: 20070725
  Receipt Date: 20070406
  Transmission Date: 20080115
  Serious: Yes (Other)
  Sender: FDA-Public Use
  Company Number: 2007SP006412

PATIENT
  Age: 41 Year
  Sex: Male
  Weight: 75.9 kg

DRUGS (4)
  1. TEMOZOLOMIDE [Suspect]
     Indication: ASTROCYTOMA, LOW GRADE
     Dosage: PO
     Route: 048
     Dates: start: 20070319, end: 20070403
  2. DECADRON [Suspect]
     Indication: DRUG USE FOR UNKNOWN INDICATION
  3. KEPPRA [Suspect]
     Indication: DRUG USE FOR UNKNOWN INDICATION
  4. BENADRYL [Concomitant]

REACTIONS (2)
  - ALANINE AMINOTRANSFERASE INCREASED [None]
  - THERAPEUTIC AGENT TOXICITY [None]
